FAERS Safety Report 4676930-2 (Version None)
Quarter: 2005Q2

REPORT INFORMATION
  Report Type: 
  Country: None (occurrence: None)
  Receive Date: 20050530
  Receipt Date: 20040604
  Transmission Date: 20051028
  Serious: Yes (Other)
  Sender: FDA-Public Use
  Company Number: PHEH2004US06177

PATIENT
  Age: 67 Year
  Sex: Female

DRUGS (1)
  1. ZOMETA [Suspect]
     Indication: BREAST CANCER

REACTIONS (7)
  - ABSCESS [None]
  - BONE DEBRIDEMENT [None]
  - BONE DISORDER [None]
  - IMPAIRED HEALING [None]
  - OSTEONECROSIS [None]
  - PAIN [None]
  - TOOTH EXTRACTION [None]
